FAERS Safety Report 15977763 (Version 1)
Quarter: 2019Q1

REPORT INFORMATION
  Report Type: Spontaneous
  Country: US (occurrence: US)
  Receive Date: 20190218
  Receipt Date: 20190218
  Transmission Date: 20190418
  Serious: No
  Sender: FDA-Public Use
  Company Number: US-BRACCO-2018US02571

PATIENT
  Age: 33 Year
  Sex: Male

DRUGS (1)
  1. ISOVUE-M 200 [Suspect]
     Active Substance: IOPAMIDOL
     Indication: SPINAL MYELOGRAM
     Dosage: 15 ML, SINGLE
     Route: 037
     Dates: start: 20180509

REACTIONS (2)
  - Drug ineffective [Unknown]
  - No adverse event [Unknown]

NARRATIVE: CASE EVENT DATE: 20180509
